FAERS Safety Report 4495232-0 (Version None)
Quarter: 2004Q4

REPORT INFORMATION
  Report Type: 
  Country: None (occurrence: None)
  Receive Date: 20041108
  Receipt Date: 20040722
  Transmission Date: 20050328
  Serious: No
  Sender: FDA-Public Use
  Company Number: US-GLAXOSMITHKLINE-A0519374A

PATIENT
  Sex: Male

DRUGS (3)
  1. AVANDAMET [Suspect]
     Route: 048
     Dates: start: 20040501, end: 20040701
  2. LANTUS [Concomitant]
  3. LISINOPRIL [Concomitant]

REACTIONS (1)
  - NECK PAIN [None]
